FAERS Safety Report 13435361 (Version 1)
Quarter: 2017Q2

REPORT INFORMATION
  Report Type: Spontaneous
  Country: US (occurrence: US)
  Receive Date: 20170412
  Receipt Date: 20170412
  Transmission Date: 20170830
  Serious: Yes (Other)
  Sender: FDA-Public Use
  Company Number: US-PFIZER INC-2017148972

PATIENT
  Age: 52 Year
  Sex: Female

DRUGS (3)
  1. EPIPEN [Suspect]
     Active Substance: EPINEPHRINE
     Dosage: UNK
     Dates: start: 20160728, end: 20160728
  2. CYCLOBENZAPRINE HYDROCHLORIDE. [Concomitant]
     Active Substance: CYCLOBENZAPRINE HYDROCHLORIDE
     Dosage: 5 MG, PRN (10 YEARS)
     Dates: start: 2007
  3. ACETAMINOPHEN W/HYDROCODONE BITARTRATE [Concomitant]
     Active Substance: ACETAMINOPHEN\HYDROCODONE BITARTRATE
     Dosage: 1000 MG, PRN

REACTIONS (4)
  - Product quality issue [Unknown]
  - Device issue [Unknown]
  - Device failure [Unknown]
  - Apnoea [Unknown]

NARRATIVE: CASE EVENT DATE: 20160728
